FAERS Safety Report 8990291 (Version 1)
Quarter: 2012Q4

REPORT INFORMATION
  Report Type: 
  Country: US (occurrence: US)
  Receive Date: 20121228
  Receipt Date: 20121228
  Transmission Date: 20130627
  Serious: No
  Sender: FDA-Public Use
  Company Number: US-009507513-1212USA008428

PATIENT
  Age: 4 Year
  Sex: Male

DRUGS (2)
  1. SINGULAIR [Suspect]
     Indication: ASTHMA
     Dosage: 4 mg, qd
     Route: 048
     Dates: start: 201210
  2. ALBUTEROL [Concomitant]
     Dosage: UNK, prn

REACTIONS (3)
  - Sleep disorder [Unknown]
  - Drug dose omission [Unknown]
  - Tremor [Unknown]
